FAERS Safety Report 9046533 (Version 1)
Quarter: 2013Q1

REPORT INFORMATION
  Report Type: Spontaneous
  Country: US (occurrence: None)
  Receive Date: 20130128
  Receipt Date: 20130128
  Transmission Date: 20140127
  Serious: Yes (Other)
  Sender: FDA-Public Use
  Company Number: None

PATIENT
  Age: 79 Year
  Sex: Female
  Weight: 64 kg

DRUGS (21)
  1. SIMVASTATIN [Suspect]
     Indication: HYPERLIPIDAEMIA
  2. D5 1/2 NS [Concomitant]
  3. VITAMIN D [Concomitant]
  4. SENOKOT-S [Concomitant]
  5. LOVENOX [Concomitant]
  6. EVISTA [Concomitant]
  7. ZOCOR [Concomitant]
  8. CALCIUM [Concomitant]
  9. ZOFRAN [Concomitant]
  10. NORCO [Concomitant]
  11. MIRALAX [Concomitant]
  12. DULCOLAX [Concomitant]
  13. ASPIRIN [Concomitant]
  14. CALCIUM CARBONATE [Concomitant]
  15. ENOXAPARIN [Concomitant]
  16. ESCITALOPRAM [Concomitant]
  17. NORCO [Concomitant]
  18. MECLIZINE [Concomitant]
  19. MULTIVITAMIN [Concomitant]
  20. RALOXIFENE [Concomitant]
  21. SENOKOT [Concomitant]

REACTIONS (2)
  - Blood pressure fluctuation [None]
  - Dizziness postural [None]
